FAERS Safety Report 14691127 (Version 2)
Quarter: 2018Q3

REPORT INFORMATION
  Report Type: Spontaneous
  Country: IT (occurrence: IT)
  Receive Date: 20180328
  Receipt Date: 20180803
  Transmission Date: 20181010
  Serious: Yes (Other)
  Sender: FDA-Public Use
  Company Number: IT-BAUSCH-BL-2018-007722

PATIENT
  Age: 54 Year
  Sex: Male

DRUGS (6)
  1. BORTEZOMIB. [Suspect]
     Active Substance: BORTEZOMIB
     Dosage: 1.3 MG/SQM/DAY (3 INFUSIONS EVERY 20 DAYS)
     Route: 065
  2. SOLDESAM [Suspect]
     Active Substance: DEXAMETHASONE
     Indication: CARDIAC AMYLOIDOSIS
     Dosage: 20 MG/DAY,  FOR 4 DAYS
     Route: 065
  3. BORTEZOMIB. [Suspect]
     Active Substance: BORTEZOMIB
     Indication: CARDIAC AMYLOIDOSIS
     Dosage: 1.3 MG/SQM/DAY 3 CYCLES
     Route: 065
  4. BORTEZOMIB. [Suspect]
     Active Substance: BORTEZOMIB
     Dosage: 1.3 MG/SQM/DAY (8 INFUSIONS EVERY 10 DAYS)
     Route: 065
  5. SOLDESAM [Suspect]
     Active Substance: DEXAMETHASONE
     Dosage: DEXAMETHASONE (20MG/DAY) ADMINISTERED ON THE 1ST, 4TH, 8TH, AND 11TH DAY OF EVERY 21 DAYS COURSE
     Route: 065
  6. MELPHALAN. [Suspect]
     Active Substance: MELPHALAN
     Indication: CARDIAC AMYLOIDOSIS
     Dosage: 6 CYCLES (14MG/DAY) FOR 4 DAYS
     Route: 065

REACTIONS (1)
  - Leukopenia [Unknown]
